FAERS Safety Report 25596995 (Version 1)
Quarter: 2025Q3

REPORT INFORMATION
  Report Type: Report from Study
  Country: JP (occurrence: JP)
  Receive Date: 20250723
  Receipt Date: 20250723
  Transmission Date: 20251021
  Serious: Yes (Death)
  Sender: ABBVIE
  Company Number: JP-ABBVIE-6383040

PATIENT
  Sex: Male

DRUGS (1)
  1. HUMIRA [Suspect]
     Active Substance: ADALIMUMAB
     Indication: Product used for unknown indication
     Route: 058

REACTIONS (1)
  - Death [Fatal]
